FAERS Safety Report 7294650-5 (Version None)
Quarter: 2011Q1

REPORT INFORMATION
  Report Type: 
  Country: None (occurrence: None)
  Receive Date: 20110216
  Receipt Date: 20110204
  Transmission Date: 20110831
  Serious: Yes (Other)
  Sender: FDA-Public Use
  Company Number: CA-RANBAXY-2011US-41668

PATIENT
  Age: 35 Year
  Sex: Male

DRUGS (1)
  1. RISPERDONE [Suspect]
     Indication: SCHIZOPHRENIA
     Dosage: 3 MG, BID
     Route: 065

REACTIONS (1)
  - VENTRICULAR TACHYCARDIA [None]
